FAERS Safety Report 8139227-4 (Version None)
Quarter: 2012Q1

REPORT INFORMATION
  Report Type: 
  Country: None (occurrence: None)
  Receive Date: 20120215
  Receipt Date: 20120209
  Transmission Date: 20120608
  Serious: Yes (Death, Life-Threatening, Hospitalization, Other)
  Sender: FDA-Public Use
  Company Number: JP-PFIZER INC-2012026676

PATIENT
  Age: 69 Year
  Sex: Male
  Weight: 56.6 kg

DRUGS (5)
  1. KENALOG [Concomitant]
     Indication: PROPHYLAXIS
     Dosage: AS NEEDED
     Route: 061
     Dates: end: 20111227
  2. TEMSIROLIMUS [Suspect]
     Indication: RENAL CELL CARCINOMA
     Dosage: 25 MG, WEEKLY
     Route: 041
     Dates: start: 20111115, end: 20111129
  3. TEMSIROLIMUS [Suspect]
     Dosage: 25 MG, WEEKLY
     Route: 041
     Dates: start: 20111220, end: 20111227
  4. SODIUM BICARBONATE [Concomitant]
     Indication: PROPHYLAXIS
     Dosage: 6 G, 3X/DAY
  5. RESTAMIN [Concomitant]
     Indication: PROPHYLAXIS
     Dosage: 50 MG, 1X/DAY
     Route: 048
     Dates: start: 20111115

REACTIONS (3)
  - INTERSTITIAL LUNG DISEASE [None]
  - PNEUMONIA BACTERIAL [None]
  - PNEUMOCYSTIS JIROVECI PNEUMONIA [None]
